FAERS Safety Report 13792905 (Version 2)
Quarter: 2017Q3

REPORT INFORMATION
  Report Type: Spontaneous
  Country: US (occurrence: US)
  Receive Date: 20170726
  Receipt Date: 20170728
  Transmission Date: 20171127
  Serious: Yes (Hospitalization)
  Sender: FDA-Public Use
  Company Number: PHEH2017US022411

PATIENT
  Age: 49 Year
  Sex: Male

DRUGS (1)
  1. VOTRIENT [Suspect]
     Active Substance: PAZOPANIB HYDROCHLORIDE
     Indication: EMBOLISM
     Dosage: 4 DF, QD
     Route: 048

REACTIONS (3)
  - Thrombosis [Unknown]
  - Product use in unapproved indication [Unknown]
  - Cellulitis [Unknown]

NARRATIVE: CASE EVENT DATE: 20170712
